FAERS Safety Report 4695368-5 (Version None)
Quarter: 2005Q2

REPORT INFORMATION
  Report Type: 
  Country: None (occurrence: None)
  Receive Date: 20050617
  Receipt Date: 20050530
  Transmission Date: 20051028
  Serious: No
  Sender: FDA-Public Use
  Company Number: 11347

PATIENT
  Age: 14 Month
  Sex: Male

DRUGS (4)
  1. VITAMIN A [Suspect]
     Indication: MALNUTRITION
     Dosage: 90000 IU
  2. CEFTRIAXONE [Concomitant]
  3. AMIKACIN [Concomitant]
  4. VITAMIN D [Concomitant]

REACTIONS (2)
  - BENIGN INTRACRANIAL HYPERTENSION [None]
  - HYPERVITAMINOSIS A [None]
